FAERS Safety Report 9910818 (Version 1)
Quarter: 2014Q1

REPORT INFORMATION
  Report Type: Spontaneous
  Country: BE (occurrence: BE)
  Receive Date: 20140219
  Receipt Date: 20140219
  Transmission Date: 20141002
  Serious: Yes (Other)
  Sender: FDA-Public Use
  Company Number: BE-BAYER-2014-023818

PATIENT
  Age: 57 Year
  Sex: Male

DRUGS (2)
  1. AVELOX [Suspect]
     Indication: RESPIRATORY TRACT INFECTION
  2. MOTILIUM [Concomitant]

REACTIONS (3)
  - Bundle branch block right [None]
  - Supraventricular extrasystoles [None]
  - Electrocardiogram QT prolonged [None]
